FAERS Safety Report 7442211 (Version 3)
Quarter: 2014Q1

REPORT INFORMATION
  Report Type: Spontaneous
  Country: US (occurrence: US)
  Receive Date: 20100628
  Receipt Date: 20140124
  Transmission Date: 20141002
  Serious: No
  Sender: FDA-Public Use
  Company Number: US-JNJFOC-20100606131

PATIENT
  Age: 53 Year
  Sex: Female
  Weight: 114.31 kg

DRUGS (29)
  1. DURAGESIC [Suspect]
     Indication: PAIN
     Route: 062
     Dates: start: 201004
  2. DURAGESIC [Suspect]
     Indication: PAIN
     Route: 062
     Dates: start: 2007, end: 201005
  3. DURAGESIC [Suspect]
     Indication: PAIN
     Route: 062
     Dates: start: 20100618
  4. DURAGESIC [Suspect]
     Indication: PAIN
     Route: 062
  5. DURAGESIC [Suspect]
     Indication: PAIN
     Route: 062
     Dates: start: 2008
  6. DURAGESIC [Suspect]
     Indication: PAIN
     Route: 062
     Dates: start: 20100515
  7. DURAGESIC [Suspect]
     Indication: PAIN
     Route: 062
     Dates: start: 20100616, end: 20100618
  8. DURAGESIC [Suspect]
     Indication: PAIN
     Route: 062
     Dates: start: 201005, end: 201005
  9. FENTANYL TRANSDERMAL SYSTEM [Suspect]
     Indication: PAIN
     Route: 062
  10. SANDOZ FENTANYL TRANSDERMAL SYSTEM [Suspect]
     Indication: PAIN
     Route: 062
     Dates: start: 20100513, end: 20100515
  11. AMBIEN [Suspect]
     Indication: SLEEP DISORDER
     Route: 048
     Dates: end: 2009
  12. PERCOCET [Concomitant]
     Indication: BREAKTHROUGH PAIN
     Route: 048
  13. PERCOCET [Concomitant]
     Indication: BREAKTHROUGH PAIN
     Route: 048
     Dates: start: 2003
  14. BENICAR [Concomitant]
     Indication: BLOOD PRESSURE
     Route: 048
     Dates: start: 2003
  15. ZETIA [Concomitant]
     Indication: BLOOD CHOLESTEROL
     Route: 048
     Dates: start: 2007
  16. PLAVIX [Concomitant]
     Indication: ANTICOAGULANT THERAPY
     Route: 048
     Dates: start: 2004
  17. PLAVIX [Concomitant]
     Indication: ANTICOAGULANT THERAPY
     Route: 048
     Dates: start: 2003
  18. CARDIZEM [Concomitant]
     Indication: BLOOD PRESSURE
     Route: 048
     Dates: start: 2003
  19. CARDIZEM [Concomitant]
     Indication: HEART RATE
     Route: 048
     Dates: start: 2003
  20. LIPITOR [Concomitant]
     Indication: BLOOD CHOLESTEROL
     Route: 048
     Dates: start: 2004
  21. FOLIC ACID [Concomitant]
     Indication: PRODUCT USED FOR UNKNOWN INDICATION
     Route: 048
  22. FOLIC ACID [Concomitant]
     Indication: PRODUCT USED FOR UNKNOWN INDICATION
     Route: 048
     Dates: start: 2003
  23. ZOLOFT [Concomitant]
     Indication: PRODUCT USED FOR UNKNOWN INDICATION
     Route: 048
  24. PRO AIR [Concomitant]
     Indication: ASTHMA
     Route: 055
  25. CYMBALTA [Concomitant]
     Indication: ANTIDEPRESSANT THERAPY
     Route: 048
     Dates: start: 2003
  26. CYMBALTA [Concomitant]
     Indication: PAIN
     Route: 048
     Dates: start: 2003
  27. BENICAR HCT [Concomitant]
     Indication: CARDIAC DISORDER
     Dosage: 40/25 MG EVERY DAY
     Route: 048
     Dates: start: 2003
  28. BENICAR HCT [Concomitant]
     Indication: BLOOD PRESSURE
     Dosage: 40/25 MG EVERY DAY
     Route: 048
     Dates: start: 2003
  29. LUNESTA [Concomitant]
     Indication: SLEEP DISORDER
     Route: 048
     Dates: start: 2003

REACTIONS (7)
  - Weight increased [Not Recovered/Not Resolved]
  - Vomiting [Recovered/Resolved]
  - Nausea [Recovered/Resolved]
  - Overdose [Recovered/Resolved]
  - Inappropriate schedule of drug administration [Recovered/Resolved]
  - Product quality issue [Unknown]
  - Incorrect dosage administered [Not Recovered/Not Resolved]
